FAERS Safety Report 4706566-6 (Version None)
Quarter: 2005Q3

REPORT INFORMATION
  Report Type: 
  Country: None (occurrence: None)
  Receive Date: 20050705
  Receipt Date: 20050628
  Transmission Date: 20060218
  Serious: Yes (Other)
  Sender: FDA-Public Use
  Company Number: US-MERCK-0506USA03890

PATIENT
  Sex: Female

DRUGS (1)
  1. SINGULAIR [Suspect]
     Route: 048
     Dates: start: 20040101

REACTIONS (1)
  - ALLERGIC GRANULOMATOUS ANGIITIS [None]
